FAERS Safety Report 8076374-X (Version None)
Quarter: 2012Q1

REPORT INFORMATION
  Report Type: 
  Country: None (occurrence: None)
  Receive Date: 20120127
  Receipt Date: 20120127
  Transmission Date: 20120608
  Serious: Yes (Other)
  Sender: FDA-Public Use
  Company Number: None

PATIENT
  Age: 38 Year
  Sex: Male
  Weight: 63.502 kg

DRUGS (1)
  1. FLUCONAZOLE [Suspect]
     Indication: CANDIDIASIS
     Route: 048
     Dates: start: 20120118, end: 20120118

REACTIONS (13)
  - NAUSEA [None]
  - BURNING SENSATION [None]
  - PALPITATIONS [None]
  - CHEST DISCOMFORT [None]
  - PYREXIA [None]
  - HEART RATE INCREASED [None]
  - PRODUCT CONTAMINATION [None]
  - ORAL CANDIDIASIS [None]
  - ABDOMINAL DISCOMFORT [None]
  - OROPHARYNGEAL PAIN [None]
  - PRODUCT QUALITY ISSUE [None]
  - BLOOD PRESSURE INCREASED [None]
  - DRUG INEFFECTIVE [None]
